FAERS Safety Report 24456425 (Version 2)
Quarter: 2024Q4

REPORT INFORMATION
  Report Type: Spontaneous
  Country: MX (occurrence: MX)
  Receive Date: 20241017
  Receipt Date: 20241018
  Transmission Date: 20250114
  Serious: No
  Sender: ROCHE
  Company Number: MX-ROCHE-3511509

PATIENT
  Sex: Male
  Weight: 79.0 kg

DRUGS (1)
  1. RITUXIMAB [Suspect]
     Active Substance: RITUXIMAB
     Indication: Multiple sclerosis
     Route: 042
     Dates: start: 2019

REACTIONS (2)
  - Off label use [Unknown]
  - No adverse event [Unknown]
